FAERS Safety Report 14302788 (Version 1)
Quarter: 2017Q4

REPORT INFORMATION
  Report Type: Spontaneous
  Country: US (occurrence: US)
  Receive Date: 20171219
  Receipt Date: 20171219
  Transmission Date: 20180321
  Serious: No
  Sender: FDA-Public Use
  Company Number: US-BAYER-2017-241707

PATIENT
  Age: 65 Year
  Sex: Female
  Weight: 51.97 kg

DRUGS (3)
  1. MIRALAX [Suspect]
     Active Substance: POLYETHYLENE GLYCOL 3350
     Indication: GASTROINTESTINAL DISORDER
     Dosage: 17 G, UNK
     Route: 048
     Dates: start: 2007
  2. MIRALAX [Suspect]
     Active Substance: POLYETHYLENE GLYCOL 3350
     Indication: GASTROINTESTINAL DISORDER
     Dosage: UNK
     Route: 048
     Dates: start: 20171212, end: 20171213
  3. OMEPRAZOLE. [Concomitant]
     Active Substance: OMEPRAZOLE

REACTIONS (8)
  - Abdominal pain upper [Unknown]
  - Constipation [Recovering/Resolving]
  - Product use issue [None]
  - Muscle spasms [Unknown]
  - Flatulence [Unknown]
  - Product use issue [Unknown]
  - Flatulence [Unknown]
  - Middle insomnia [Unknown]

NARRATIVE: CASE EVENT DATE: 2007
